FAERS Safety Report 15341998 (Version 1)
Quarter: 2018Q3

REPORT INFORMATION
  Report Type: Spontaneous
  Country: US (occurrence: US)
  Receive Date: 20180828
  Receipt Date: 20180828
  Transmission Date: 20181010
  Serious: Yes (Other)
  Sender: FDA-Public Use
  Company Number: None

PATIENT
  Age: 72 Year
  Sex: Female
  Weight: 60.75 kg

DRUGS (13)
  1. MIRALAX [Concomitant]
     Active Substance: POLYETHYLENE GLYCOL 3350
  2. RALOXIFENE. [Concomitant]
     Active Substance: RALOXIFENE
  3. OCREVUS [Suspect]
     Active Substance: OCRELIZUMAB
     Indication: MULTIPLE SCLEROSIS
     Dosage: ?          OTHER FREQUENCY:EVERY 6 MONTHS;?
     Route: 041
  4. AMPYRA [Concomitant]
     Active Substance: DALFAMPRIDINE
  5. TUMERIC [Concomitant]
     Active Substance: HERBALS\TURMERIC
  6. FLUTICASONE NASAL SUSPENSION [Concomitant]
     Active Substance: FLUTICASONE PROPIONATE
  7. PAROXETINE. [Concomitant]
     Active Substance: PAROXETINE
  8. VITAMIN B COMPLEX [Concomitant]
     Active Substance: CYANOCOBALAMIN\DEXPANTHENOL\NIACINAMIDE\PYRIDOXINE HYDROCHLORIDE\RIBOFLAVIN 5^-PHOSPHATE SODIUM\THIAMINE HYDROCHLORIDE\VITAMIN B COMPLEX
  9. VITAMIN D3 [Concomitant]
     Active Substance: CHOLECALCIFEROL
  10. CALCIUM SUPPLEMENT [Concomitant]
     Active Substance: CALCIUM
  11. MODAFINIL. [Concomitant]
     Active Substance: MODAFINIL
  12. BACLOFEN. [Concomitant]
     Active Substance: BACLOFEN
  13. VITAMIN C [Concomitant]
     Active Substance: ASCORBIC ACID

REACTIONS (1)
  - Cough [None]
